FAERS Safety Report 8877119 (Version 1)
Quarter: 2012Q4

REPORT INFORMATION
  Report Type: 
  Country: US (occurrence: US)
  Receive Date: 20121023
  Receipt Date: 20121023
  Transmission Date: 20130627
  Serious: No
  Sender: FDA-Public Use
  Company Number: US-AMGEN-USASP2012057132

PATIENT
  Age: 57 Year
  Sex: Male

DRUGS (1)
  1. ENBREL [Suspect]
     Indication: ULCERATIVE KERATITIS
     Dosage: 50 mg, qwk
     Route: 058
     Dates: start: 20070301, end: 20120818

REACTIONS (1)
  - Vision blurred [Not Recovered/Not Resolved]
